FAERS Safety Report 5744784-9 (Version None)
Quarter: 2008Q2

REPORT INFORMATION
  Report Type: 
  Country: None (occurrence: None)
  Receive Date: 20080520
  Receipt Date: 20080512
  Transmission Date: 20081010
  Serious: Yes (Other)
  Sender: FDA-Public Use
  Company Number: JP-MERCK-0805USA03069

PATIENT
  Age: 37 Year
  Sex: Female

DRUGS (3)
  1. PEPCID [Suspect]
     Route: 048
     Dates: start: 20060101, end: 20060101
  2. [THERAPY UNSPECIFIED] [Concomitant]
     Route: 065
  3. [THERAPY UNSPECIFIED] [Concomitant]
     Route: 065

REACTIONS (1)
  - LIVER DISORDER [None]
